FAERS Safety Report 14264576 (Version 2)
Quarter: 2017Q4

REPORT INFORMATION
  Report Type: Spontaneous
  Country: US (occurrence: US)
  Receive Date: 20171208
  Receipt Date: 20171208
  Transmission Date: 20180321
  Serious: No
  Sender: FDA-Public Use
  Company Number: US-TEVA-2017-US-829359

PATIENT
  Sex: Female

DRUGS (1)
  1. ESTRADIOL VAG [Suspect]
     Active Substance: ESTRADIOL
     Route: 065

REACTIONS (4)
  - Product quality issue [Unknown]
  - Product packaging issue [None]
  - Hot flush [Unknown]
  - Vulvovaginal discomfort [Unknown]
